FAERS Safety Report 6662446-0 (Version None)
Quarter: 2010Q1

REPORT INFORMATION
  Report Type: 
  Country: None (occurrence: None)
  Receive Date: 20100331
  Receipt Date: 20100322
  Transmission Date: 20100710
  Serious: Yes (Other)
  Sender: FDA-Public Use
  Company Number: TW-WATSON-2010-03806

PATIENT
  Age: 65 Year
  Sex: Male

DRUGS (1)
  1. GENTAMICIN SULFATE (WATSON LABORATORIES) [Suspect]
     Indication: MACULOPATHY
     Dosage: 0.2 CC, 40MG/CC
     Route: 057

REACTIONS (2)
  - INFARCTION [None]
  - MACULAR ISCHAEMIA [None]
